FAERS Safety Report 14935490 (Version 2)
Quarter: 2018Q2

REPORT INFORMATION
  Report Type: Spontaneous
  Country: TH (occurrence: TH)
  Receive Date: 20180524
  Receipt Date: 20180531
  Transmission Date: 20180711
  Serious: Yes (Death, Other)
  Sender: FDA-Public Use
  Company Number: TH-009507513-1804THA003126

PATIENT

DRUGS (3)
  1. KEYTRUDA [Suspect]
     Active Substance: PEMBROLIZUMAB
     Indication: NON-SMALL CELL LUNG CANCER
     Dosage: 100 MG, Q3W (1 VIAL). CYLE 1
     Dates: start: 20170113
  2. KEYTRUDA [Suspect]
     Active Substance: PEMBROLIZUMAB
     Dosage: 100 MG, Q3W (1 VIAL). CYCLE 2
     Dates: start: 201702
  3. KEYTRUDA [Suspect]
     Active Substance: PEMBROLIZUMAB
     Dosage: 100 MG, Q3W (1 VIAL). CYCLE 3
     Dates: start: 201703

REACTIONS (1)
  - Death [Fatal]
